FAERS Safety Report 6061809-4 (Version None)
Quarter: 2009Q1

REPORT INFORMATION
  Report Type: 
  Country: None (occurrence: None)
  Receive Date: 20090202
  Receipt Date: 20090123
  Transmission Date: 20090719
  Serious: Yes (Hospitalization, Other)
  Sender: FDA-Public Use
  Company Number: US-ELI_LILLY_AND_COMPANY-US200901004134

PATIENT
  Sex: Male
  Weight: 85.261 kg

DRUGS (9)
  1. BYETTA [Suspect]
     Indication: TYPE 2 DIABETES MELLITUS
     Dosage: 5 UG, 2/D
     Route: 058
     Dates: start: 20010101
  2. GLIMEPIRIDE [Concomitant]
     Indication: TYPE 2 DIABETES MELLITUS
     Dosage: UNK D/F, 2/D
     Route: 048
  3. TRAMADOL HCL [Concomitant]
     Indication: PERIPHERAL NERVE LESION
     Dosage: UNK MG, AS NEEDED
     Route: 048
  4. NORVASC [Concomitant]
     Indication: RENAL DISORDER
     Dosage: UNK, DAILY (1/D)
     Route: 048
  5. ALLOPURINOL [Concomitant]
     Indication: RENAL DISORDER
     Dosage: 300 MG, QOD
     Route: 048
  6. TYLENOL (CAPLET) [Concomitant]
     Indication: ARTHRITIS
  7. VITAMIN B [Concomitant]
     Dosage: 500 MG, DAILY (1/D)
  8. DOXAZOSIN MESYLATE [Concomitant]
     Indication: BLOOD PRESSURE INCREASED
     Dosage: 8 MG, DAILY (1/D)
     Route: 048
  9. ATENOLOL [Concomitant]
     Indication: BLOOD PRESSURE INCREASED
     Dosage: 100 MG, DAILY (1/D)
     Route: 048

REACTIONS (8)
  - BLOOD PRESSURE INCREASED [None]
  - CONVULSION [None]
  - LOSS OF CONSCIOUSNESS [None]
  - MALAISE [None]
  - MEMORY IMPAIRMENT [None]
  - PERIPHERAL NERVE LESION [None]
  - RENAL DISORDER [None]
  - ROAD TRAFFIC ACCIDENT [None]
